FAERS Safety Report 4431783-2 (Version None)
Quarter: 2004Q3

REPORT INFORMATION
  Report Type: 
  Country: None (occurrence: None)
  Receive Date: 20040825
  Receipt Date: 20040816
  Transmission Date: 20050211
  Serious: Yes (Hospitalization)
  Sender: FDA-Public Use
  Company Number: FR-JNJFOC-20040805066

PATIENT
  Age: 41 Year
  Sex: Female

DRUGS (1)
  1. TOPALGIC [Suspect]
     Indication: DRUG USE FOR UNKNOWN INDICATION
     Route: 049

REACTIONS (8)
  - DYSPNOEA [None]
  - FACE OEDEMA [None]
  - HOARSENESS [None]
  - LARYNGEAL OEDEMA [None]
  - LOCALISED OEDEMA [None]
  - PRURITUS [None]
  - RALES [None]
  - WHEEZING [None]
